FAERS Safety Report 6372444-2 (Version None)
Quarter: 2009Q3

REPORT INFORMATION
  Report Type: 
  Country: None (occurrence: None)
  Receive Date: 20090924
  Receipt Date: 20080730
  Transmission Date: 20100115
  Serious: No
  Sender: FDA-Public Use
  Company Number: US-ASTRAZENECA-2008UW15084

PATIENT
  Sex: Female

DRUGS (6)
  1. SEROQUEL [Suspect]
     Indication: BIPOLAR DISORDER
     Route: 048
     Dates: start: 20080630, end: 20080726
  2. CELEXA [Concomitant]
  3. LITHIUM [Concomitant]
  4. HORMONES [Concomitant]
  5. XANAX [Concomitant]
  6. MOM [Concomitant]

REACTIONS (2)
  - GLOSSODYNIA [None]
  - MEDICATION ERROR [None]
